FAERS Safety Report 6014305-4 (Version None)
Quarter: 2008Q4

REPORT INFORMATION
  Report Type: 
  Country: None (occurrence: None)
  Receive Date: 20081219
  Receipt Date: 20080403
  Transmission Date: 20090506
  Serious: No
  Sender: FDA-Public Use
  Company Number: A0719161A

PATIENT
  Age: 52 Year
  Sex: Male

DRUGS (3)
  1. AVODART [Suspect]
     Indication: BENIGN PROSTATIC HYPERPLASIA
     Dosage: .5MG PER DAY
     Route: 048
     Dates: start: 20080301, end: 20080331
  2. UNKNOWN ANTIBIOTIC [Concomitant]
  3. VIAGRA [Concomitant]

REACTIONS (1)
  - ERECTILE DYSFUNCTION [None]
